FAERS Safety Report 5646970-5 (Version None)
Quarter: 2008Q1

REPORT INFORMATION
  Report Type: 
  Country: None (occurrence: None)
  Receive Date: 20080303
  Receipt Date: 20080220
  Transmission Date: 20080703
  Serious: Yes (Life-Threatening, Hospitalization)
  Sender: FDA-Public Use
  Company Number: B0395941A

PATIENT
  Age: 34 Year
  Sex: Male

DRUGS (1)
  1. ZYBAN [Suspect]
     Dosage: 150MG UNKNOWN
     Route: 065
     Dates: start: 20050809, end: 20050822

REACTIONS (4)
  - DYSPNOEA [None]
  - RESPIRATORY DISORDER [None]
  - STRIDOR [None]
  - URTICARIA [None]
